FAERS Safety Report 7132478-7 (Version None)
Quarter: 2010Q4

REPORT INFORMATION
  Report Type: 
  Country: None (occurrence: None)
  Receive Date: 20101202
  Receipt Date: 20101118
  Transmission Date: 20110411
  Serious: Yes (Other)
  Sender: FDA-Public Use
  Company Number: GXKR2010US13124

PATIENT
  Age: 22 Year
  Sex: Female

DRUGS (1)
  1. LAMOTRIGINE [Suspect]
     Dosage: 275 MG, BID
     Route: 065

REACTIONS (6)
  - CONSCIOUSNESS FLUCTUATING [None]
  - ELECTROCARDIOGRAM ABNORMAL [None]
  - FALL [None]
  - LOSS OF CONSCIOUSNESS [None]
  - NAUSEA [None]
  - VERTIGO [None]
